FAERS Safety Report 21342094 (Version 5)
Quarter: 2022Q4

REPORT INFORMATION
  Report Type: Spontaneous
  Country: US (occurrence: US)
  Receive Date: 20220916
  Receipt Date: 20221229
  Transmission Date: 20230112
  Serious: Yes (Hospitalization, Other)
  Sender: FDA-Public Use
  Company Number: US-PFIZER INC-202201063501

PATIENT
  Age: 79 Year
  Sex: Male
  Weight: 102 kg

DRUGS (7)
  1. VYNDAMAX [Suspect]
     Active Substance: TAFAMIDIS
     Indication: Heart rate increased
     Dosage: 61 MG, 1X/DAY
     Route: 048
     Dates: start: 2019
  2. VYNDAMAX [Suspect]
     Active Substance: TAFAMIDIS
     Indication: Heart rate irregular
  3. ELIQUIS [Concomitant]
     Active Substance: APIXABAN
     Dosage: 5 MG
  4. PANTOPRAZOLE [Concomitant]
     Active Substance: PANTOPRAZOLE
     Dosage: 40 MG
  5. EZETIMIBE [Concomitant]
     Active Substance: EZETIMIBE
     Dosage: 10 MG
  6. AMLODIPINE [Concomitant]
     Active Substance: AMLODIPINE BESYLATE
     Dosage: 2.5 MG
  7. LOSARTAN [Concomitant]
     Active Substance: LOSARTAN
     Dosage: 50 MG

REACTIONS (10)
  - Psoriasis [Unknown]
  - Oropharyngeal candidiasis [Unknown]
  - Oesophageal ulcer [Unknown]
  - Fall [Unknown]
  - Knee arthroplasty [Unknown]
  - Choking [Unknown]
  - Cerebrovascular accident [Unknown]
  - Weight decreased [Unknown]
  - Off label use [Unknown]
  - Illness [Unknown]

NARRATIVE: CASE EVENT DATE: 20190101
